FAERS Safety Report 21194536 (Version 1)
Quarter: 2022Q3

REPORT INFORMATION
  Report Type: Spontaneous
  Country: US (occurrence: None)
  Receive Date: 20220809
  Receipt Date: 20220809
  Transmission Date: 20221027
  Serious: Yes (Other)
  Sender: FDA-Public Use
  Company Number: None

PATIENT
  Age: 48 Year
  Sex: Female
  Weight: 93.44 kg

DRUGS (4)
  1. TRINTELLIX [Suspect]
     Active Substance: VORTIOXETINE HYDROBROMIDE
     Dates: start: 20220221, end: 20220809
  2. INVEGA [Concomitant]
     Active Substance: PALIPERIDONE
  3. XANAX [Concomitant]
     Active Substance: ALPRAZOLAM
  4. Oxcarbazapine. [Concomitant]

REACTIONS (5)
  - Tongue movement disturbance [None]
  - Dyskinesia [None]
  - Oral disorder [None]
  - Depressed mood [None]
  - Disease recurrence [None]

NARRATIVE: CASE EVENT DATE: 20220809
